FAERS Safety Report 21658962 (Version 1)
Quarter: 2022Q4

REPORT INFORMATION
  Report Type: Spontaneous
  Country: US (occurrence: None)
  Receive Date: 20221128
  Receipt Date: 20221128
  Transmission Date: 20230112
  Serious: Yes (Other)
  Sender: FDA-Public Use
  Company Number: None

PATIENT
  Age: 65 Year
  Sex: Female
  Weight: 103.87 kg

DRUGS (17)
  1. IMDUR [Suspect]
     Active Substance: ISOSORBIDE MONONITRATE
     Indication: Angina pectoris
     Dosage: FREQUENCY : DAILY;?
     Route: 048
     Dates: start: 20220501, end: 20220507
  2. ASPIRIN [Concomitant]
     Active Substance: ASPIRIN
  3. BACTROBAN [Concomitant]
     Active Substance: MUPIROCIN\MUPIROCIN CALCIUM
  4. ENTRESTO [Concomitant]
     Active Substance: SACUBITRIL\VALSARTAN
  5. FUROSEMIDE [Concomitant]
     Active Substance: FUROSEMIDE
  6. IPRATROPIUM BROMIDE [Concomitant]
     Active Substance: IPRATROPIUM BROMIDE
  7. ISOSORBIDE [Concomitant]
     Active Substance: ISOSORBIDE
  8. LATANOPROST [Concomitant]
     Active Substance: LATANOPROST
  9. LEXAPRO [Concomitant]
     Active Substance: ESCITALOPRAM OXALATE
  10. METOPROLOL TARTRATE [Concomitant]
     Active Substance: METOPROLOL TARTRATE
  11. NITROGLYCERIN [Concomitant]
     Active Substance: NITROGLYCERIN
  12. NOVOLOG [Concomitant]
     Active Substance: INSULIN ASPART
  13. PRILOSEC OTC [Concomitant]
     Active Substance: OMEPRAZOLE MAGNESIUM
  14. Ranolazine ER (Ranexa) [Concomitant]
  15. SKELAXIN [Concomitant]
     Active Substance: METAXALONE
  16. TOPIRAMATE [Concomitant]
     Active Substance: TOPIRAMATE
  17. TRAMADOL [Concomitant]
     Active Substance: TRAMADOL

REACTIONS (8)
  - Product substitution issue [None]
  - Chest pain [None]
  - Headache [None]
  - Tremor [None]
  - Lethargy [None]
  - Adverse drug reaction [None]
  - Therapy non-responder [None]
  - Product supply issue [None]
